FAERS Safety Report 14072966 (Version 2)
Quarter: 2017Q4

REPORT INFORMATION
  Report Type: Spontaneous
  Country: IT (occurrence: IT)
  Receive Date: 20171011
  Receipt Date: 20171011
  Transmission Date: 20180321
  Serious: Yes (Other)
  Sender: FDA-Public Use
  Company Number: IT-VERICEL CORPORATION-VCEL-2017-000829

PATIENT

DRUGS (1)
  1. MACI [Suspect]
     Active Substance: AUTOLOGOUS CULTURED CHONDROCYTES\SUS SCROFA COLLAGEN
     Indication: OSTEOCHONDROSIS
     Dosage: UNK
     Route: 065

REACTIONS (1)
  - Osteochondrosis [Unknown]
